FAERS Safety Report 4381967-7 (Version None)
Quarter: 2004Q2

REPORT INFORMATION
  Report Type: 
  Country: None (occurrence: None)
  Receive Date: 20040615
  Receipt Date: 20031217
  Transmission Date: 20050107
  Serious: Yes (Life-Threatening, Hospitalization)
  Sender: FDA-Public Use
  Company Number: 2003191499IN

PATIENT
  Age: 30 Year
  Sex: Male
  Weight: 50 kg

DRUGS (3)
  1. DEPO-MEDROL [Suspect]
     Indication: RHEUMATOID ARTHRITIS
     Dosage: 80 MG, MONTHLY, INTRAMUSCULAR
     Route: 030
     Dates: start: 20031101, end: 20031209
  2. PIROXICAM [Concomitant]
  3. VALDECOXIB [Concomitant]

REACTIONS (3)
  - ANAPHYLACTIC SHOCK [None]
  - VERTIGO [None]
  - VOMITING [None]
